FAERS Safety Report 5978143 (Version 7)
Quarter: 2015Q1

REPORT INFORMATION
  Report Type: Spontaneous
  Country: US (occurrence: US)
  Receive Date: 20060207
  Receipt Date: 20150128
  Transmission Date: 20150721
  Serious: Yes (Life-Threatening, Hospitalization, Other)
  Sender: FDA-Public Use
  Company Number: US-ROCHE-433893

PATIENT
  Age: 23 Year
  Sex: Male
  Weight: 90.7 kg

DRUGS (7)
  1. ACCUTANE [Suspect]
     Active Substance: ISOTRETINOIN
     Dosage: INDICATION FOR USE CYSTIC ACNE.
     Route: 048
  2. ACCUTANE [Suspect]
     Active Substance: ISOTRETINOIN
     Indication: ACNE
     Route: 048
     Dates: start: 1984, end: 1985
  3. CLEOCIN [Concomitant]
     Active Substance: CLINDAMYCIN PHOSPHATE
     Indication: PSEUDOFOLLICULITIS BARBAE
     Route: 061
  4. HYTONE [Concomitant]
     Active Substance: HYDROCORTISONE
     Indication: LIP DRY
     Route: 061
  5. ACCUTANE [Suspect]
     Active Substance: ISOTRETINOIN
     Route: 048
     Dates: start: 1985, end: 1987
  6. ERYMAX [Concomitant]
     Active Substance: ERYTHROMYCIN
     Route: 048
  7. SEPTRA DS [Concomitant]
     Active Substance: SULFAMETHOXAZOLE\TRIMETHOPRIM
     Route: 048

REACTIONS (11)
  - Renal disorder [Recovered/Resolved]
  - Chronic kidney disease [Unknown]
  - Kidney transplant rejection [Unknown]
  - Dry skin [Unknown]
  - Acne [Recovered/Resolved]
  - Lip exfoliation [Unknown]
  - Depression [Unknown]
  - IgA nephropathy [Recovered/Resolved]
  - Lip dry [Unknown]
  - Headache [Recovering/Resolving]
  - Dizziness [Recovering/Resolving]

NARRATIVE: CASE EVENT DATE: 19861027
